FAERS Safety Report 9773186 (Version 1)
Quarter: 2013Q4

REPORT INFORMATION
  Report Type: Spontaneous
  Country: US (occurrence: None)
  Receive Date: 20131217
  Receipt Date: 20131217
  Transmission Date: 20140711
  Serious: Yes (Hospitalization)
  Sender: FDA-Public Use
  Company Number: 2010S1000572

PATIENT
  Age: 64 Year
  Sex: Female
  Weight: 74.84 kg

DRUGS (3)
  1. FLEET PHOSPHO-SODA [Suspect]
     Indication: COLONOSCOPY
     Route: 048
     Dates: start: 20050113, end: 20050113
  2. ZESTRIL (LISINOPRIL) (10 MILLIGRAM) [Concomitant]
  3. GLUCOVANCE (METFORMIN HYDROCHLORIDE, GLIBENCLAMIDE) [Concomitant]

REACTIONS (12)
  - Oropharyngeal pain [None]
  - Chills [None]
  - Nausea [None]
  - Respiratory disorder [None]
  - Malaise [None]
  - Hypophagia [None]
  - Renal failure acute [None]
  - Hypovolaemia [None]
  - Vomiting [None]
  - Renal failure chronic [None]
  - Renal tubular necrosis [None]
  - Kidney fibrosis [None]
